FAERS Safety Report 24524570 (Version 1)
Quarter: 2024Q4

REPORT INFORMATION
  Report Type: Spontaneous
  Country: IT (occurrence: IT)
  Receive Date: 20241019
  Receipt Date: 20241019
  Transmission Date: 20250115
  Serious: Yes (Other)
  Sender: ACCORD
  Company Number: None

PATIENT
  Age: 37 Year
  Sex: Female

DRUGS (6)
  1. PACLITAXEL [Suspect]
     Active Substance: PACLITAXEL
     Indication: Breast cancer
  2. DEURSIL [Concomitant]
     Active Substance: URSODIOL
  3. LAMIVUDINE [Concomitant]
     Active Substance: LAMIVUDINE
     Dosage: PROPHYLAXIS OF HEPATITIS B REACTIVATION IN INACTIVE CARRIERS (L. 648/1996 AND?S.M.I.)
  4. LEVOPRAID [Concomitant]
  5. LEUCOVORIN CALCIUM [Concomitant]
     Active Substance: LEUCOVORIN CALCIUM
  6. OMEPRAZOLE [Concomitant]
     Active Substance: OMEPRAZOLE

REACTIONS (5)
  - Hyperpyrexia [Recovered/Resolved]
  - Fatigue [Not Recovered/Not Resolved]
  - Hypersensitivity [Recovered/Resolved]
  - Pyrexia [Recovered/Resolved]
  - Paraesthesia [Not Recovered/Not Resolved]

NARRATIVE: CASE EVENT DATE: 20240807
